FAERS Safety Report 21049867 (Version 1)
Quarter: 2022Q3

REPORT INFORMATION
  Report Type: Spontaneous
  Country: US (occurrence: US)
  Receive Date: 20220706
  Receipt Date: 20220706
  Transmission Date: 20221027
  Serious: No
  Sender: FDA-Public Use
  Company Number: US-PFIZER INC-202200916133

PATIENT
  Age: 13 Year
  Sex: Male
  Weight: 46.2 kg

DRUGS (1)
  1. MEKTOVI [Suspect]
     Active Substance: BINIMETINIB
     Indication: Brain neoplasm malignant
     Dosage: 45 MG, 2X/DAY (15MG TABLET-3 TABLETS BY MOUTH TWICE A DAY)
     Route: 048
     Dates: start: 20220107

REACTIONS (2)
  - Off label use [Unknown]
  - Dry skin [Recovering/Resolving]

NARRATIVE: CASE EVENT DATE: 20220101
